FAERS Safety Report 5334660-8 (Version None)
Quarter: 2007Q2

REPORT INFORMATION
  Report Type: 
  Country: None (occurrence: None)
  Receive Date: 20070525
  Receipt Date: 20070514
  Transmission Date: 20071010
  Serious: Yes (Death, Life-Threatening)
  Sender: FDA-Public Use
  Company Number: B0471821A

PATIENT
  Age: 82 Year
  Sex: Male
  Weight: 43 kg

DRUGS (3)
  1. DEROXAT [Suspect]
     Dosage: 20MG PER DAY
     Route: 048
     Dates: start: 20060915
  2. ATARAX [Concomitant]
     Dosage: 25MG PER DAY
     Route: 048
     Dates: start: 19971101
  3. CINACALCET HYDROCHLORIDE [Concomitant]
     Dosage: 60MG PER DAY
     Route: 048
     Dates: start: 20050815

REACTIONS (2)
  - ELECTROENCEPHALOGRAM ABNORMAL [None]
  - STATUS EPILEPTICUS [None]
